FAERS Safety Report 6979977-6 (Version None)
Quarter: 2010Q3

REPORT INFORMATION
  Report Type: 
  Country: None (occurrence: None)
  Receive Date: 20100914
  Receipt Date: 20100903
  Transmission Date: 20110219
  Serious: Yes (Other)
  Sender: FDA-Public Use
  Company Number: PT-BAYER-201036420GPV

PATIENT
  Age: 26 Year
  Sex: Female
  Weight: 73 kg

DRUGS (2)
  1. YASMIN [Suspect]
     Indication: ORAL CONTRACEPTION
     Route: 048
     Dates: start: 20060101
  2. ANTIINFLAMMATORY DRUGS (UNSPECIFIED) [Concomitant]

REACTIONS (3)
  - DYSPAREUNIA [None]
  - VULVOVAGINAL DISCOMFORT [None]
  - VULVOVAGINAL DRYNESS [None]
